FAERS Safety Report 16965920 (Version 2)
Quarter: 2019Q4

REPORT INFORMATION
  Report Type: Spontaneous
  Country: US (occurrence: US)
  Receive Date: 20191028
  Receipt Date: 20191202
  Transmission Date: 20200122
  Serious: No
  Sender: FDA-Public Use
  Company Number: US-PFIZER INC-2019459213

PATIENT
  Age: 53 Year
  Sex: Female
  Weight: 57 kg

DRUGS (11)
  1. MYCOBUTIN [Suspect]
     Active Substance: RIFABUTIN
     Indication: PNEUMONIA
     Dosage: 150 MG, UNK (TWICE A DAY FIVE DAYS A WEEK)
     Dates: start: 201906
  2. ETHAMBUTOL [Suspect]
     Active Substance: ETHAMBUTOL HYDROCHLORIDE
     Dosage: 400 MG, 1X/DAY
     Dates: start: 2019
  3. AZITHROMYCIN ANHYDROUS. [Suspect]
     Active Substance: AZITHROMYCIN ANHYDROUS
     Indication: PNEUMONIA
     Dosage: 500 MG, DAILY
     Dates: start: 201904, end: 2019
  4. AZITHROMYCIN ANHYDROUS. [Suspect]
     Active Substance: AZITHROMYCIN ANHYDROUS
     Dosage: 400 MG, 1X/DAY
     Route: 048
     Dates: start: 20190414
  5. RIFABUTIN. [Suspect]
     Active Substance: RIFABUTIN
     Dosage: 400 MG, 1X/DAY
     Route: 048
     Dates: start: 20190414
  6. MYCOBUTIN [Suspect]
     Active Substance: RIFABUTIN
     Dosage: 150 MG, (ONCE A DAY THREE TIMES A WEEK; MONDAY, WEDNESDAY, FRIDAY)
     Dates: start: 201908
  7. AZITHROMYCIN ANHYDROUS. [Suspect]
     Active Substance: AZITHROMYCIN ANHYDROUS
     Dosage: 500 MG, DAILY
     Dates: start: 2019
  8. RIFABUTIN. [Suspect]
     Active Substance: RIFABUTIN
     Indication: PNEUMONIA
     Dosage: 150 MG, UNK (150MG TWICE A DAY FIVE DAYS A WEEK)
     Dates: start: 201904
  9. MYCOBUTIN [Suspect]
     Active Substance: RIFABUTIN
     Dosage: 400 MG, 1X/DAY
     Route: 048
     Dates: start: 20190414
  10. ETHAMBUTOL [Suspect]
     Active Substance: ETHAMBUTOL HYDROCHLORIDE
     Indication: PNEUMONIA
     Dosage: 400 MG, 1X/DAY
     Dates: start: 201904, end: 2019
  11. ETHAMBUTOL [Suspect]
     Active Substance: ETHAMBUTOL HYDROCHLORIDE
     Dosage: 400 MG, 1X/DAY
     Route: 048
     Dates: start: 20190414

REACTIONS (2)
  - Urticaria [Recovered/Resolved]
  - Rash [Unknown]

NARRATIVE: CASE EVENT DATE: 20190606
